FAERS Safety Report 5379029-5 (Version None)
Quarter: 2007Q3

REPORT INFORMATION
  Report Type: 
  Country: None (occurrence: None)
  Receive Date: 20070705
  Receipt Date: 20070704
  Transmission Date: 20080115
  Serious: Yes (Death)
  Sender: FDA-Public Use
  Company Number: DK-ASTRAZENECA-2007SE03848

PATIENT
  Age: 21705 Day
  Sex: Female

DRUGS (5)
  1. ATACAND [Suspect]
     Indication: HYPERTENSION
     Route: 048
     Dates: start: 20070615
  2. SIMVACOP [Suspect]
     Indication: HYPERCHOLESTEROLAEMIA
     Route: 048
     Dates: start: 20070510, end: 20070613
  3. SIMVACOP [Suspect]
     Route: 048
     Dates: start: 20070614
  4. SEROXAT [Concomitant]
     Indication: DEPRESSION
     Route: 048
     Dates: start: 19960314
  5. CENTYL K [Concomitant]
     Indication: HYPERTENSION
     Route: 048
     Dates: start: 20050314

REACTIONS (1)
  - ACUTE MYOCARDIAL INFARCTION [None]
